FAERS Safety Report 8842156 (Version 1)
Quarter: 2012Q4

REPORT INFORMATION
  Report Type: Spontaneous
  Country: US (occurrence: None)
  Receive Date: 20121015
  Receipt Date: 20121015
  Transmission Date: 20130627
  Serious: No
  Sender: FDA-Public Use
  Company Number: None

PATIENT
  Age: 63 Year
  Sex: Male
  Weight: 137.6 kg

DRUGS (1)
  1. SULFAMETHOXAZOLE/TRIMETHOPRIM [Suspect]
     Indication: CELLULITIS
     Dosage: MG BID PO
     Route: 048
     Dates: start: 20120924, end: 20121004

REACTIONS (3)
  - Swollen tongue [None]
  - Glossodynia [None]
  - Rash maculo-papular [None]
